FAERS Safety Report 13261215 (Version 3)
Quarter: 2017Q1

REPORT INFORMATION
  Report Type: Spontaneous
  Country: JP (occurrence: JP)
  Receive Date: 20170222
  Receipt Date: 20170322
  Transmission Date: 20170428
  Serious: Yes (Death, Hospitalization)
  Sender: FDA-Public Use
  Company Number: JP-JNJFOC-20170220323

PATIENT
  Age: 68 Year
  Sex: Male
  Weight: 75.4 kg

DRUGS (9)
  1. XARELTO [Suspect]
     Active Substance: RIVAROXABAN
     Indication: ATRIAL FIBRILLATION
     Route: 048
     Dates: start: 20161230, end: 20170105
  2. GLACTIV [Concomitant]
     Active Substance: SITAGLIPTIN
     Route: 048
  3. BLOSTAR M [Concomitant]
     Route: 048
  4. NEUFAN [Concomitant]
     Active Substance: ALLOPURINOL
     Route: 048
  5. CANDESARTAN [Concomitant]
     Active Substance: CANDESARTAN
     Route: 048
  6. BISOPROLOL FUMARATE. [Concomitant]
     Active Substance: BISOPROLOL FUMARATE
     Route: 048
  7. DEPAS [Concomitant]
     Active Substance: ETIZOLAM
     Route: 048
  8. XARELTO [Suspect]
     Active Substance: RIVAROXABAN
     Indication: ATRIAL FIBRILLATION
     Route: 048
     Dates: start: 20161229, end: 20161229
  9. PRAVASTATIN SODIUM. [Concomitant]
     Active Substance: PRAVASTATIN SODIUM
     Route: 048

REACTIONS (3)
  - Gastrointestinal haemorrhage [Fatal]
  - Extra dose administered [Unknown]
  - Acute left ventricular failure [Fatal]

NARRATIVE: CASE EVENT DATE: 20161229
